FAERS Safety Report 8883751 (Version 1)
Quarter: 2012Q4

REPORT INFORMATION
  Report Type: 
  Country: US (occurrence: US)
  Receive Date: 20121102
  Receipt Date: 20121102
  Transmission Date: 20130627
  Serious: Yes (Hospitalization, Other)
  Sender: FDA-Public Use
  Company Number: US-ASTRAZENECA-2012SE81133

PATIENT
  Age: 69 Year
  Sex: Female
  Weight: 125 kg

DRUGS (10)
  1. SEROQUEL [Suspect]
     Route: 048
     Dates: start: 2001
  2. SEROQUEL [Suspect]
     Route: 048
  3. SEROQUEL [Suspect]
     Route: 048
  4. SEROQUEL [Suspect]
     Route: 048
     Dates: start: 20120414, end: 20120730
  5. SEROQUEL [Suspect]
     Route: 048
     Dates: start: 20120730
  6. SEROQUEL [Suspect]
     Route: 048
  7. MIRTAZAPINE [Concomitant]
     Indication: SLEEP DISORDER
  8. BUPROPION XL [Concomitant]
     Indication: DEPRESSION
  9. MIRALAX [Concomitant]
     Indication: HERNIA
  10. CLONAZEPAM [Concomitant]
     Indication: ANXIETY
     Route: 048
     Dates: start: 2007

REACTIONS (16)
  - Hiatus hernia [Unknown]
  - Hallucination [Unknown]
  - Pneumonia [Unknown]
  - Insomnia [Unknown]
  - Mental disorder [Unknown]
  - Paralysis [Unknown]
  - Pain [Unknown]
  - Weight decreased [Unknown]
  - Disturbance in attention [Unknown]
  - Stress [Unknown]
  - Body height decreased [Unknown]
  - Adverse event [Unknown]
  - Enuresis [Unknown]
  - Middle insomnia [Unknown]
  - Somnolence [Unknown]
  - Drug ineffective [Unknown]
